FAERS Safety Report 8229721-X (Version None)
Quarter: 2012Q1

REPORT INFORMATION
  Report Type: 
  Country: None (occurrence: None)
  Receive Date: 20120322
  Receipt Date: 20120313
  Transmission Date: 20120608
  Serious: Yes (Hospitalization)
  Sender: FDA-Public Use
  Company Number: JP-MERCK-1203USA00885

PATIENT
  Age: 51 Year
  Sex: Male
  Weight: 64 kg

DRUGS (8)
  1. ASPIRIN [Concomitant]
     Indication: ANGINA PECTORIS
     Dosage: DOSAGE IS UNCERTAIN DURING A DAY.
     Route: 048
     Dates: start: 20120126, end: 20120222
  2. LIPITOR [Concomitant]
     Indication: HYPERCHOLESTEROLAEMIA
     Dosage: DOSAGE IS UNCERTAIN DURING A DAY.
     Route: 048
     Dates: start: 20120112, end: 20120222
  3. PLAVIX [Suspect]
     Indication: ANGINA PECTORIS
     Dosage: DOSAGE IS UNCERTAIN DURING A DAY.
     Route: 048
     Dates: start: 20120128, end: 20120222
  4. ZETIA [Suspect]
     Indication: HYPERCHOLESTEROLAEMIA
     Route: 048
     Dates: start: 20120221, end: 20120222
  5. CONIEL [Concomitant]
     Indication: HYPERTENSION
     Dosage: DOSAGE IS UNCERTAIN DURING A DAY.
     Route: 048
     Dates: start: 20120126, end: 20120222
  6. LANSOPRAZOLE [Suspect]
     Indication: GASTRIC ULCER
     Dosage: DOSAGE IS UNCERTAIN DURING A DAY.
     Route: 048
     Dates: start: 20120126, end: 20120222
  7. EPADEL [Concomitant]
     Indication: ANGINA PECTORIS
     Dosage: DOSAGE IS UNCERTAIN DURING A DAY.
     Route: 048
     Dates: start: 20120126, end: 20120222
  8. URSO 250 [Concomitant]
     Indication: HEPATITIS C
     Dosage: DOSAGE IS UNCERTAIN DURING A DAY.
     Route: 048
     Dates: start: 20110908, end: 20120222

REACTIONS (1)
  - GASTROENTERITIS EOSINOPHILIC [None]
